FAERS Safety Report 7703439-1 (Version None)
Quarter: 2011Q3

REPORT INFORMATION
  Report Type: 
  Country: None (occurrence: None)
  Receive Date: 20110823
  Receipt Date: 20110823
  Transmission Date: 20111222
  Serious: Yes (Hospitalization)
  Sender: FDA-Public Use
  Company Number: None

PATIENT
  Age: 71 Year
  Sex: Male
  Weight: 75.5 kg

DRUGS (14)
  1. METHYLPHENIDATE [Concomitant]
     Route: 048
  2. TOPROL-XL [Concomitant]
     Route: 048
  3. VITAMIN B COMPLEX-B COMPLEX TAB [Concomitant]
     Route: 048
  4. SYNTHROID [Concomitant]
     Route: 048
  5. BEVACIZUMAB [Suspect]
     Indication: GLIOBLASTOMA MULTIFORME
     Dosage: 10 MG/KG
     Route: 041
     Dates: start: 20100319, end: 20100609
  6. CELEXA [Concomitant]
     Route: 048
  7. LIPITOR [Concomitant]
     Route: 048
  8. ASPIRIN, ENTERIC COATED -ECOTRI [Concomitant]
     Route: 048
  9. LEVETIRACETAM [Concomitant]
     Route: 048
  10. METHYLPHENIDATE [Concomitant]
     Route: 048
  11. ATIVAN [Concomitant]
     Route: 048
  12. SINEMET [Concomitant]
     Route: 048
  13. SENNOSIDES-SENNA [Concomitant]
     Route: 048
  14. MULTI-VITAMIN [Concomitant]
     Route: 048

REACTIONS (1)
  - CONVULSION [None]
